FAERS Safety Report 7047371-8 (Version None)
Quarter: 2010Q4

REPORT INFORMATION
  Report Type: 
  Country: None (occurrence: None)
  Receive Date: 20101015
  Receipt Date: 20101012
  Transmission Date: 20110411
  Serious: Yes (Life-Threatening, Other)
  Sender: FDA-Public Use
  Company Number: PHHY2010JP48902

PATIENT
  Sex: Female
  Weight: 58 kg

DRUGS (9)
  1. COMTAN [Suspect]
     Indication: PARKINSON'S DISEASE
     Dosage: 100 MG, QD
     Route: 048
     Dates: start: 20090604
  2. PRAMIPEXOLE DIHYDROCHLORIDE [Interacting]
     Indication: PARKINSON'S DISEASE
     Dosage: 1.5 MG, QD
     Route: 048
     Dates: start: 20090209
  3. CARBIDOPA AND LEVODOPA [Interacting]
     Indication: PARKINSON'S DISEASE
     Dosage: 300 MG, QD
     Route: 048
     Dates: start: 20090209
  4. ARTANE [Interacting]
     Indication: PARKINSON'S DISEASE
     Dosage: UNK
     Dates: start: 20090209
  5. ZOLOFT [Interacting]
     Dosage: 2 DF, QD
     Dates: start: 20100624
  6. MENESIT [Concomitant]
     Dosage: 300 MG, UNK
     Route: 048
  7. TOPHARMIN [Concomitant]
     Indication: PARKINSON'S DISEASE
     Dosage: 100 MG, UNK
     Route: 048
     Dates: start: 20090209
  8. LIPITOR [Concomitant]
     Indication: LIPIDS ABNORMAL
     Dosage: 5 MG, UNK
     Dates: start: 20090209
  9. THYRADIN S [Concomitant]
     Dosage: 25 UG, UNK
     Route: 048
     Dates: start: 20090326

REACTIONS (6)
  - CONTUSION [None]
  - DRUG INTERACTION [None]
  - LOSS OF CONSCIOUSNESS [None]
  - PAIN [None]
  - ROAD TRAFFIC ACCIDENT [None]
  - SUDDEN ONSET OF SLEEP [None]
